FAERS Safety Report 5525999-1 (Version None)
Quarter: 2007Q4

REPORT INFORMATION
  Report Type: 
  Country: None (occurrence: None)
  Receive Date: 20071126
  Receipt Date: 20071114
  Transmission Date: 20080405
  Serious: Yes (Other)
  Sender: FDA-Public Use
  Company Number: NL-BOEHRINGER INGELHEIM PHARMACEUTICALS, INC.-2007-BP-24988YA

PATIENT
  Sex: Male

DRUGS (4)
  1. OMNIC OCAS ORODISPERSABLE CR [Suspect]
     Indication: BENIGN PROSTATIC HYPERPLASIA
     Route: 048
     Dates: start: 20070927, end: 20071106
  2. TAMSULOSIN HCL [Suspect]
     Indication: BENIGN PROSTATIC HYPERPLASIA
     Route: 065
     Dates: end: 20070927
  3. TAMSULOSIN HCL [Suspect]
     Route: 048
     Dates: start: 20071106
  4. PROSCAR [Concomitant]
     Route: 065
     Dates: start: 20040203

REACTIONS (3)
  - ABDOMINAL PAIN UPPER [None]
  - HYPERTENSION [None]
  - NOCTURIA [None]
